FAERS Safety Report 20416012 (Version 2)
Quarter: 2022Q1

REPORT INFORMATION
  Report Type: Spontaneous
  Country: US (occurrence: US)
  Receive Date: 20220202
  Receipt Date: 20220314
  Transmission Date: 20220424
  Serious: No
  Sender: FDA-Public Use
  Company Number: US-PFIZER INC-202200010343

PATIENT
  Age: 3 Year
  Sex: Female
  Weight: 9.98 kg

DRUGS (1)
  1. GENOTROPIN [Suspect]
     Active Substance: SOMATROPIN
     Indication: Growth hormone deficiency
     Dosage: 0.3 INJECTION EVERY NIGHT
     Dates: start: 202104

REACTIONS (5)
  - Device use issue [Unknown]
  - Drug dose omission by device [Unknown]
  - Device breakage [Unknown]
  - Device information output issue [Unknown]
  - Device mechanical issue [Unknown]
